FAERS Safety Report 9595158 (Version 1)
Quarter: 2013Q4

REPORT INFORMATION
  Report Type: Spontaneous
  Country: US (occurrence: US)
  Receive Date: 20131004
  Receipt Date: 20131004
  Transmission Date: 20140711
  Serious: Yes (Other)
  Sender: FDA-Public Use
  Company Number: US-BAYER-2013-119395

PATIENT
  Age: 24 Year
  Sex: Female

DRUGS (1)
  1. YAZ [Suspect]

REACTIONS (7)
  - Deep vein thrombosis [Recovered/Resolved]
  - Deep vein thrombosis [None]
  - Thrombophlebitis superficial [Recovered/Resolved]
  - Cholecystitis chronic [None]
  - Biliary dyskinesia [None]
  - Thrombophlebitis superficial [Recovered/Resolved]
  - Deep vein thrombosis [None]
